FAERS Safety Report 5035420-8 (Version None)
Quarter: 2006Q2

REPORT INFORMATION
  Report Type: 
  Country: None (occurrence: None)
  Receive Date: 20060627
  Receipt Date: 20060616
  Transmission Date: 20061013
  Serious: Yes (Hospitalization)
  Sender: FDA-Public Use
  Company Number: US-KINGPHARMUSA00001-K200600779

PATIENT
  Age: 33 Year
  Sex: Male

DRUGS (7)
  1. ALTACE [Suspect]
     Indication: CORONARY ANGIOPLASTY
     Dosage: 5 MG, QD
     Route: 048
     Dates: start: 20060516, end: 20060529
  2. OMEPRAZOLE [Concomitant]
     Dosage: 20 MG, QD
     Route: 048
     Dates: start: 20060516
  3. TICLID [Concomitant]
     Dosage: 500 MG, QD
     Route: 048
     Dates: start: 20060516
  4. SELOKEN [Concomitant]
     Dosage: 200 MG, QD
     Route: 048
     Dates: start: 20060516
  5. CARDIRENE [Concomitant]
     Dosage: 160 MG, QD
     Route: 048
     Dates: start: 20060516
  6. TORVAST [Concomitant]
     Dosage: 20 MG, QD
     Route: 048
     Dates: start: 20060516, end: 20060529
  7. METBAY [Concomitant]
     Dosage: 1000 MG, QD
     Route: 048
     Dates: start: 20060516, end: 20060529

REACTIONS (7)
  - DYSPHONIA [None]
  - EYELID OEDEMA [None]
  - LARYNGOSPASM [None]
  - ODYNOPHAGIA [None]
  - OEDEMA PERIPHERAL [None]
  - SYNCOPE [None]
  - URTICARIA [None]
